FAERS Safety Report 10261657 (Version 2)
Quarter: 2014Q3

REPORT INFORMATION
  Report Type: Report from Study
  Country: FR (occurrence: FR)
  Receive Date: 20140626
  Receipt Date: 20140826
  Transmission Date: 20150326
  Serious: Yes (Other)
  Sender: FDA-Public Use
  Company Number: FR-JNJFOC-20140614189

PATIENT
  Age: 70 Year
  Sex: Female

DRUGS (5)
  1. RETINOL [Concomitant]
     Active Substance: RETINOL
     Route: 065
     Dates: start: 20140430
  2. SOFOSBUVIR [Suspect]
     Active Substance: SOFOSBUVIR
     Indication: HEPATITIS C
     Route: 048
     Dates: start: 20140318
  3. SIMEPREVIR [Suspect]
     Active Substance: SIMEPREVIR
     Indication: HEPATITIS C
     Route: 048
     Dates: start: 20140318
  4. BETAMETHASONE [Concomitant]
     Active Substance: BETAMETHASONE
     Route: 065
     Dates: start: 20140430
  5. VALACICLOVIR [Concomitant]
     Active Substance: VALACYCLOVIR HYDROCHLORIDE
     Route: 065
     Dates: start: 20140430

REACTIONS (6)
  - Platelet count decreased [Unknown]
  - Neutrophil count decreased [Unknown]
  - Haemoglobin decreased [Unknown]
  - Photosensitivity reaction [Unknown]
  - Aspartate aminotransferase increased [Unknown]
  - Blood bilirubin increased [Unknown]

NARRATIVE: CASE EVENT DATE: 20140420
